FAERS Safety Report 5859089-5 (Version None)
Quarter: 2008Q3

REPORT INFORMATION
  Report Type: 
  Country: None (occurrence: None)
  Receive Date: 20080825
  Receipt Date: 20080808
  Transmission Date: 20090109
  Serious: Yes (Other)
  Sender: FDA-Public Use
  Company Number: 8035961

PATIENT
  Age: 50 Year
  Sex: Female

DRUGS (1)
  1. KEPPRA [Suspect]
     Dosage: 1000 MG 2/D
     Dates: start: 20080401

REACTIONS (3)
  - ANXIETY [None]
  - PRURITUS [None]
  - SUICIDAL IDEATION [None]
